FAERS Safety Report 9244735 (Version 3)
Quarter: 2013Q3

REPORT INFORMATION
  Report Type: Spontaneous
  Country: US (occurrence: US)
  Receive Date: 20130422
  Receipt Date: 20130822
  Transmission Date: 20140515
  Serious: No
  Sender: FDA-Public Use
  Company Number: US-009507513-1304USA011983

PATIENT
  Age: 52 Year
  Sex: Female

DRUGS (3)
  1. PEGINTRON [Suspect]
     Indication: HEPATITIS C
     Dosage: UNK
     Dates: start: 20130226, end: 20130723
  2. REBETOL [Suspect]
     Indication: HEPATITIS C
     Dosage: UNK
     Route: 048
     Dates: start: 20130226, end: 20130723
  3. VICTRELIS [Suspect]
     Indication: HEPATITIS C
     Dosage: UNK
     Route: 048
     Dates: start: 20130326, end: 20130723

REACTIONS (6)
  - Viral mutation identified [Unknown]
  - Stomatitis [Unknown]
  - Fatigue [Unknown]
  - Influenza like illness [Unknown]
  - Pyrexia [Unknown]
  - Viral load increased [Unknown]
